FAERS Safety Report 17787638 (Version 2)
Quarter: 2020Q2

REPORT INFORMATION
  Report Type: Spontaneous
  Country: DE (occurrence: DE)
  Receive Date: 20200514
  Receipt Date: 20200625
  Transmission Date: 20200714
  Serious: Yes (Hospitalization, Other)
  Sender: FDA-Public Use
  Company Number: NVSC2020DE130325

PATIENT
  Age: 56 Year
  Sex: Female

DRUGS (2)
  1. LEVOFLOXACIN - 1 A PHARMA 500 MG FILMTABLETTEN [Suspect]
     Active Substance: LEVOFLOXACIN
     Indication: PNEUMONITIS
     Dosage: 500 MG, QD
     Route: 065
     Dates: start: 201604
  2. LEVOFLOXACIN - 1 A PHARMA 500 MG FILMTABLETTEN [Suspect]
     Active Substance: LEVOFLOXACIN
     Dosage: 1000 MG, QD EVERY DAYS 2 SEPARATED DOSES
     Route: 065
     Dates: start: 20160414, end: 20160421

REACTIONS (6)
  - Limb discomfort [Not Recovered/Not Resolved]
  - Hypersensitivity [Unknown]
  - Oedema peripheral [Not Recovered/Not Resolved]
  - Tendon pain [Unknown]
  - Tendonitis [Not Recovered/Not Resolved]
  - Aortic valve incompetence [Unknown]

NARRATIVE: CASE EVENT DATE: 201604
